FAERS Safety Report 7788285-5 (Version None)
Quarter: 2011Q3

REPORT INFORMATION
  Report Type: 
  Country: None (occurrence: None)
  Receive Date: 20110929
  Receipt Date: 20110929
  Transmission Date: 20111222
  Serious: Yes (Hospitalization)
  Sender: FDA-Public Use
  Company Number: None

PATIENT
  Age: 49 Year
  Sex: Female
  Weight: 52.4 kg

DRUGS (17)
  1. DECITABINE [Suspect]
     Indication: COLON CANCER METASTATIC
     Dosage: 45MG/M2/2HRS
     Dates: start: 20110325
  2. DECITABINE [Suspect]
     Indication: COLON CANCER METASTATIC
     Dosage: 45MG/M2/2HRS
     Dates: start: 20110421
  3. DECITABINE [Suspect]
     Indication: COLON CANCER METASTATIC
     Dosage: 45MG/M2/2HRS
     Dates: start: 20110407
  4. DECITABINE [Suspect]
     Indication: COLON CANCER METASTATIC
     Dosage: 45MG/M2/2HRS
     Dates: start: 20110505
  5. REGLAN [Concomitant]
  6. LOVENOX [Concomitant]
  7. PANITUMUMAB 200MG AMGEN [Suspect]
     Indication: COLON CANCER METASTATIC
     Dosage: 6MG/KG/1HR
     Dates: start: 20110414
  8. PANITUMUMAB 200MG AMGEN [Suspect]
     Indication: COLON CANCER METASTATIC
     Dosage: 6MG/KG/1HR
     Dates: start: 20110428
  9. PANITUMUMAB 200MG AMGEN [Suspect]
     Indication: COLON CANCER METASTATIC
     Dosage: 6MG/KG/1HR
     Dates: start: 20110331
  10. COMPAZINE [Concomitant]
  11. LEXAPRO [Concomitant]
  12. OTC COUGH SUPPRESSANT AND EXPECTORANT [Concomitant]
  13. MEGACE [Concomitant]
  14. MS CONTIN [Concomitant]
  15. LORTAB [Concomitant]
  16. DOCUSATE [Concomitant]
  17. RITALIN [Concomitant]

REACTIONS (8)
  - CONSTIPATION [None]
  - PYREXIA [None]
  - DYSPNOEA [None]
  - COUGH [None]
  - PARAINFLUENZAE VIRUS INFECTION [None]
  - CHRONIC OBSTRUCTIVE PULMONARY DISEASE [None]
  - ABDOMINAL DISTENSION [None]
  - HYPOXIA [None]
